FAERS Safety Report 14711445 (Version 8)
Quarter: 2022Q2

REPORT INFORMATION
  Report Type: Spontaneous
  Country: CA (occurrence: CA)
  Receive Date: 20180403
  Receipt Date: 20220603
  Transmission Date: 20220721
  Serious: Yes (Death, Other)
  Sender: FDA-Public Use
  Company Number: CA-PFIZER INC-2017176775

PATIENT
  Age: 77 Year
  Sex: Female

DRUGS (14)
  1. XELJANZ [Suspect]
     Active Substance: TOFACITINIB CITRATE
     Indication: Rheumatoid arthritis
     Dosage: 5 MG, 2X/DAY
     Route: 048
     Dates: start: 20161020, end: 201710
  2. XELJANZ [Suspect]
     Active Substance: TOFACITINIB CITRATE
     Dosage: 5 MG, 1X/DAY
     Route: 048
     Dates: start: 201710, end: 20181210
  3. XELJANZ [Suspect]
     Active Substance: TOFACITINIB CITRATE
     Dosage: 5 MG, 1X/DAY
     Route: 048
     Dates: start: 201812, end: 201812
  4. XELJANZ [Suspect]
     Active Substance: TOFACITINIB CITRATE
     Dosage: 5 MG, 2X/DAY
     Route: 048
     Dates: start: 20190116
  5. VITAMIN B12 [Concomitant]
     Active Substance: CYANOCOBALAMIN
     Indication: Vitamin B12 deficiency
     Dosage: 1 DF, INJECTION, DOSAGE INFORMATION NOT AVAILABLE
     Route: 065
  6. FOLIC ACID [Concomitant]
     Active Substance: FOLIC ACID
     Dosage: 1 DF, DOSAGE INFORMATION NOT AVAILABLE
     Route: 065
  7. GABAPENTIN [Concomitant]
     Active Substance: GABAPENTIN
     Indication: Nerve injury
     Dosage: 300 MG, DAILY AT BED TIME
     Route: 048
  8. METHOTREXATE [Concomitant]
     Active Substance: METHOTREXATE
     Indication: Rheumatoid arthritis
     Dosage: 20 MG, WEEKLY
     Route: 048
     Dates: end: 201812
  9. METHOTREXATE [Concomitant]
     Active Substance: METHOTREXATE
     Dosage: 20 MG, WEEKLY
     Route: 048
     Dates: start: 20190116
  10. PLAQUENIL [Concomitant]
     Active Substance: HYDROXYCHLOROQUINE SULFATE
     Dosage: UNK
  11. PLAQUENIL [Concomitant]
     Active Substance: HYDROXYCHLOROQUINE SULFATE
     Dosage: 200 MG, 2X/DAY
     Route: 065
  12. PREDNISONE [Concomitant]
     Active Substance: PREDNISONE
     Dosage: UNK
  13. PANTOPRAZOLE MAGNESIUM [Concomitant]
     Active Substance: PANTOPRAZOLE MAGNESIUM
     Dosage: 1 DF, DOSAGE INFORMATION NOT AVAILABLE
     Route: 065
  14. VITAMIN D [Concomitant]
     Active Substance: VITAMIN D NOS
     Dosage: 1000 IU, DAILY
     Route: 048

REACTIONS (11)
  - Death [Fatal]
  - Macular degeneration [Unknown]
  - Hand deformity [Unknown]
  - Joint effusion [Not Recovered/Not Resolved]
  - Therapeutic product effect incomplete [Unknown]
  - Loss of personal independence in daily activities [Unknown]
  - Urinary tract infection [Recovered/Resolved]
  - Gait disturbance [Unknown]
  - Condition aggravated [Not Recovered/Not Resolved]
  - Fatigue [Unknown]
  - Muscular weakness [Unknown]

NARRATIVE: CASE EVENT DATE: 20210101
